FAERS Safety Report 21110829 (Version 1)
Quarter: 2022Q3

REPORT INFORMATION
  Report Type: Spontaneous
  Country: CO (occurrence: CO)
  Receive Date: 20220721
  Receipt Date: 20220721
  Transmission Date: 20221026
  Serious: Yes (Other)
  Sender: FDA-Public Use
  Company Number: CO-SA-SAC20220719000950

PATIENT
  Age: 23 Year
  Sex: Male
  Weight: 41 kg

DRUGS (1)
  1. ALDURAZYME [Suspect]
     Active Substance: LARONIDASE
     Indication: Mucopolysaccharidosis I
     Dosage: 28MG/250MG
     Route: 042

REACTIONS (8)
  - HIV infection [Unknown]
  - Corneal opacity [Unknown]
  - Corneal transplant [Unknown]
  - Chondromatosis [Unknown]
  - Obstructive sleep apnoea syndrome [Unknown]
  - Sleep apnoea syndrome [Unknown]
  - Spondylolisthesis [Unknown]
  - Abdominal discomfort [Unknown]

NARRATIVE: CASE EVENT DATE: 20180801
